FAERS Safety Report 17018660 (Version 2)
Quarter: 2020Q1

REPORT INFORMATION
  Report Type: Report from Study
  Country: None (occurrence: US)
  Receive Date: 20191111
  Receipt Date: 20200211
  Transmission Date: 20200409
  Serious: Yes (Other)
  Sender: FDA-Public Use
  Company Number: US-ABBVIE-19K-163-2994261-00

PATIENT
  Age: 75 Year
  Sex: Female
  Weight: 87.62 kg

DRUGS (1)
  1. HUMIRA [Suspect]
     Active Substance: ADALIMUMAB
     Indication: RHEUMATOID ARTHRITIS
     Route: 058
     Dates: start: 20191022

REACTIONS (7)
  - Systemic lupus erythematosus [Unknown]
  - Lacrimation increased [Not Recovered/Not Resolved]
  - Feeling hot [Recovered/Resolved]
  - Ocular discomfort [Not Recovered/Not Resolved]
  - Flushing [Unknown]
  - Dizziness [Recovered/Resolved]
  - Nausea [Unknown]

NARRATIVE: CASE EVENT DATE: 201910
